FAERS Safety Report 22049957 (Version 1)
Quarter: 2023Q1

REPORT INFORMATION
  Report Type: Spontaneous
  Country: US (occurrence: None)
  Receive Date: 20230228
  Receipt Date: 20230228
  Transmission Date: 20230418
  Serious: No
  Sender: FDA-Public Use
  Company Number: None

PATIENT
  Age: 71 Year
  Sex: Female

DRUGS (2)
  1. AMBRISENTAN [Suspect]
     Active Substance: AMBRISENTAN
     Dosage: 10 MG DALY ORAL?
     Route: 048
  2. SILDENAFIL [Suspect]
     Active Substance: SILDENAFIL

REACTIONS (4)
  - Chest pain [None]
  - Dizziness postural [None]
  - Sleep apnoea syndrome [None]
  - Dyspnoea exertional [None]

NARRATIVE: CASE EVENT DATE: 20230228
